FAERS Safety Report 20629622 (Version 2)
Quarter: 2022Q2

REPORT INFORMATION
  Report Type: Report from Study
  Country: US (occurrence: US)
  Receive Date: 20220323
  Receipt Date: 20220415
  Transmission Date: 20220721
  Serious: Yes (Hospitalization)
  Sender: FDA-Public Use
  Company Number: US-BoehringerIngelheim-2021-BI-137003

PATIENT
  Age: 73 Year
  Sex: Female

DRUGS (6)
  1. OFEV [Suspect]
     Active Substance: NINTEDANIB
     Indication: Idiopathic pulmonary fibrosis
     Route: 048
     Dates: start: 20210727
  2. OFEV [Suspect]
     Active Substance: NINTEDANIB
     Route: 048
  3. CHELESTYRAM [Concomitant]
  4. IPRATROPIUM/ SOL ALBUTER [Concomitant]
     Indication: Product used for unknown indication
  5. PREDNISONE [Concomitant]
     Active Substance: PREDNISONE
  6. TRELEGY ELLIPTA [Concomitant]
     Active Substance: FLUTICASONE FUROATE\UMECLIDINIUM BROMIDE\VILANTEROL TRIFENATATE

REACTIONS (12)
  - Dehydration [Unknown]
  - Gastric infection [Not Recovered/Not Resolved]
  - Diarrhoea [Not Recovered/Not Resolved]
  - Cellulitis [Unknown]
  - Nausea [Unknown]
  - Cough [Unknown]
  - Headache [Unknown]
  - Back disorder [Unknown]
  - Productive cough [Unknown]
  - Decreased appetite [Not Recovered/Not Resolved]
  - Micturition frequency decreased [Unknown]
  - Retching [Not Recovered/Not Resolved]

NARRATIVE: CASE EVENT DATE: 20211101
